FAERS Safety Report 25801510 (Version 1)
Quarter: 2025Q3

REPORT INFORMATION
  Report Type: Spontaneous
  Country: US (occurrence: None)
  Receive Date: 20250912
  Receipt Date: 20250912
  Transmission Date: 20251021
  Serious: Yes (Other)
  Sender: FDA-CTU
  Company Number: None

PATIENT
  Age: 80 Year
  Sex: Male

DRUGS (1)
  1. CAPECITABINE [Suspect]
     Active Substance: CAPECITABINE
     Indication: Lung neoplasm malignant
     Dosage: 1000 MG TWICE A DAY ORAL
     Route: 048
     Dates: start: 20250411, end: 20250912

REACTIONS (2)
  - Lung neoplasm malignant [None]
  - Disease progression [None]

NARRATIVE: CASE EVENT DATE: 20250912
